FAERS Safety Report 14297911 (Version 2)
Quarter: 2018Q3

REPORT INFORMATION
  Report Type: Spontaneous
  Country: US (occurrence: US)
  Receive Date: 20171218
  Receipt Date: 20180705
  Transmission Date: 20181010
  Serious: Yes (Hospitalization, Other)
  Sender: FDA-Public Use
  Company Number: US-OTSUKA-2016_028832

PATIENT

DRUGS (4)
  1. ABILIFY [Suspect]
     Active Substance: ARIPIPRAZOLE
     Dosage: 30 MG, QD
     Route: 065
     Dates: end: 201002
  2. ABILIFY [Suspect]
     Active Substance: ARIPIPRAZOLE
     Dosage: 15 MG, QD
     Route: 065
  3. ABILIFY [Suspect]
     Active Substance: ARIPIPRAZOLE
     Dosage: 20 MG, QD
     Route: 065
  4. ABILIFY [Suspect]
     Active Substance: ARIPIPRAZOLE
     Indication: AFFECTIVE DISORDER
     Dosage: 5 MG, QD
     Route: 065

REACTIONS (13)
  - Obsessive-compulsive disorder [Recovered/Resolved]
  - Sexually transmitted disease [Unknown]
  - Gambling disorder [Recovered/Resolved]
  - Loss of employment [Unknown]
  - Attention deficit/hyperactivity disorder [Unknown]
  - Product use in unapproved indication [Unknown]
  - Suicide attempt [Recovered/Resolved]
  - Mental disorder [Unknown]
  - Eating disorder [Recovered/Resolved]
  - Economic problem [Unknown]
  - Psychosexual disorder [Recovered/Resolved]
  - Suicidal ideation [Recovered/Resolved]
  - Hypersexuality [Unknown]

NARRATIVE: CASE EVENT DATE: 2008
